FAERS Safety Report 5817022-6 (Version None)
Quarter: 2008Q3

REPORT INFORMATION
  Report Type: 
  Country: None (occurrence: None)
  Receive Date: 20080717
  Receipt Date: 20080707
  Transmission Date: 20090109
  Serious: Yes (Hospitalization)
  Sender: FDA-Public Use
  Company Number: 2007BI007522

PATIENT
  Age: 51 Year
  Sex: Female

DRUGS (12)
  1. AVONEX [Suspect]
     Indication: MULTIPLE SCLEROSIS
     Dosage: 30 UG; QW; IM
     Route: 030
     Dates: start: 20000509
  2. INDOCIN [Concomitant]
  3. SOLU-MEDROL [Concomitant]
  4. NEURONTIN [Concomitant]
  5. PAXIL [Concomitant]
  6. DETROL [Concomitant]
  7. VERAPAMIL [Concomitant]
  8. TUMS [Concomitant]
  9. DEXOPRIN [Concomitant]
  10. PREMARIN [Concomitant]
  11. LORTAB [Concomitant]
  12. ZOMIG [Concomitant]

REACTIONS (3)
  - BALANCE DISORDER [None]
  - FALL [None]
  - HIP FRACTURE [None]
